FAERS Safety Report 10642889 (Version 4)
Quarter: 2015Q1

REPORT INFORMATION
  Report Type: Spontaneous
  Country: US (occurrence: US)
  Receive Date: 20141210
  Receipt Date: 20150225
  Transmission Date: 20150720
  Serious: Yes (Death, Hospitalization)
  Sender: FDA-Public Use
  Company Number: US-PFIZER INC-2014338431

PATIENT
  Age: 71 Year
  Sex: Female

DRUGS (2)
  1. AROMASIN [Suspect]
     Active Substance: EXEMESTANE
     Indication: BREAST CANCER METASTATIC
     Dosage: 25 MG, 1X/DAY
     Dates: start: 201312, end: 20141117
  2. AFINITOR [Concomitant]
     Active Substance: EVEROLIMUS
     Dosage: 2.5, 1X/DAY
     Dates: start: 201312, end: 20141117

REACTIONS (4)
  - Disease progression [Fatal]
  - Asthenia [Unknown]
  - Breast cancer [Fatal]
  - Dehydration [Fatal]

NARRATIVE: CASE EVENT DATE: 201410
